FAERS Safety Report 14195177 (Version 1)
Quarter: 2017Q4

REPORT INFORMATION
  Report Type: Spontaneous
  Country: US (occurrence: US)
  Receive Date: 20171116
  Receipt Date: 20171116
  Transmission Date: 20180321
  Serious: Yes (Hospitalization)
  Sender: FDA-Public Use
  Company Number: US-PFIZER INC-2017490320

PATIENT
  Age: 63 Year
  Sex: Female

DRUGS (1)
  1. LYRICA [Suspect]
     Active Substance: PREGABALIN
     Dosage: 150 MG, 1X/DAY (50MG, THREE CAPSULES BY MOUTH AT BEDTIME)
     Route: 048

REACTIONS (5)
  - Intentional product misuse [Unknown]
  - Colitis ulcerative [Unknown]
  - Malaise [Unknown]
  - Intentional product use issue [Unknown]
  - Withdrawal syndrome [Unknown]

NARRATIVE: CASE EVENT DATE: 201503
